FAERS Safety Report 9768869 (Version 1)
Quarter: 2013Q3

REPORT INFORMATION
  Report Type: Spontaneous
  Country: US (occurrence: None)
  Receive Date: 20130828
  Receipt Date: 20130828
  Transmission Date: 20140515
  Serious: Yes (Other)
  Sender: FDA-Public Use
  Company Number: 163-21880-13070176

PATIENT
  Age: 77 Year
  Sex: Female
  Weight: 76.2 kg

DRUGS (6)
  1. REVLIMID [Suspect]
     Indication: PLASMA CELL MYELOMA
     Route: 048
     Dates: start: 20080111
  2. OCUVITE LUTEIN (PRESERVISION LUTEIN EYE VITA.+MIN.SUP.SOFTG.) [Concomitant]
  3. FERROUS SULFATE [Concomitant]
  4. CALCIUM-VITAMIN D (CALCIUM WITH VITAMIN D) [Concomitant]
  5. LUTEIN (XANTOFYL) [Concomitant]
  6. VITAMIN D (ERGOCALCIFEROL) [Concomitant]

REACTIONS (12)
  - Neck pain [None]
  - Muscle spasms [None]
  - Malaise [None]
  - Blood glucose increased [None]
  - Infection [None]
  - Renal impairment [None]
  - Wound infection [None]
  - Blood creatinine increased [None]
  - Urinary tract infection [None]
  - Blood pressure increased [None]
  - Skin burning sensation [None]
  - Peripheral arterial occlusive disease [None]
